FAERS Safety Report 24780174 (Version 1)
Quarter: 2024Q4

REPORT INFORMATION
  Report Type: Spontaneous
  Country: FR (occurrence: FR)
  Receive Date: 20241227
  Receipt Date: 20241227
  Transmission Date: 20250114
  Serious: Yes (Hospitalization, Other)
  Sender: CIPLA
  Company Number: FR-AFSSAPS-PB2024001452

PATIENT

DRUGS (6)
  1. VALGANCICLOVIR [Suspect]
     Active Substance: VALGANCICLOVIR
     Indication: Antiviral prophylaxis
     Dosage: 450 MILLIGRAM, UNK
     Route: 048
     Dates: start: 202407, end: 20241204
  2. NULOJIX [Suspect]
     Active Substance: BELATACEPT
     Indication: Prophylaxis against transplant rejection
     Dosage: 800 MILLIGRAM, UNK
     Route: 042
     Dates: start: 20241009, end: 20241009
  3. NULOJIX [Suspect]
     Active Substance: BELATACEPT
     Dosage: 800 MILLIGRAM, UNK
     Route: 042
     Dates: start: 20241023, end: 20241023
  4. NULOJIX [Suspect]
     Active Substance: BELATACEPT
     Dosage: 800 MILLIGRAM, UNK
     Route: 042
     Dates: start: 20241106, end: 20241106
  5. NULOJIX [Suspect]
     Active Substance: BELATACEPT
     Dosage: 800 MILLIGRAM, UNK
     Route: 042
     Dates: start: 20241121, end: 20241121
  6. BACTRIM [Suspect]
     Active Substance: SULFAMETHOXAZOLE\TRIMETHOPRIM
     Indication: Antifungal prophylaxis
     Dosage: 1 DOSAGE FORM, UNK
     Route: 048
     Dates: start: 202407, end: 20241204

REACTIONS (2)
  - Pneumonia respiratory syncytial viral [Recovered/Resolved]
  - Agranulocytosis [Recovering/Resolving]

NARRATIVE: CASE EVENT DATE: 20241130
